FAERS Safety Report 9912738 (Version 1)
Quarter: 2014Q1

REPORT INFORMATION
  Report Type: Spontaneous
  Country: US (occurrence: US)
  Receive Date: 20140220
  Receipt Date: 20140220
  Transmission Date: 20141002
  Serious: No
  Sender: FDA-Public Use
  Company Number: US-PFIZER INC-2014047658

PATIENT
  Age: 56 Year
  Sex: Female
  Weight: 109 kg

DRUGS (14)
  1. CELEBREX [Suspect]
     Dosage: UNK
  2. ADVIL [Suspect]
     Dosage: UNK
  3. NAPROXEN SODIUM [Suspect]
     Dosage: UNK
  4. AMOXICILLIN [Suspect]
     Dosage: UNK
  5. ACTEMRA [Suspect]
     Dosage: UNK
  6. REMICADE [Suspect]
     Dosage: UNK
  7. PERCOCET [Suspect]
     Dosage: UNK
  8. DILAUDID [Suspect]
     Dosage: UNK
  9. BLEPH-10 [Suspect]
     Dosage: UNK
  10. DEMEROL [Suspect]
     Dosage: UNK
  11. INDOCIN [Suspect]
     Dosage: UNK
  12. PSEUDOEPHEDRINE [Suspect]
     Dosage: UNK
  13. SUDAFED [Suspect]
     Dosage: UNK
  14. VIOXX [Suspect]
     Dosage: UNK

REACTIONS (1)
  - Drug hypersensitivity [Unknown]
